FAERS Safety Report 4543358-5 (Version None)
Quarter: 2005Q1

REPORT INFORMATION
  Report Type: 
  Country: None (occurrence: None)
  Receive Date: 20050103
  Receipt Date: 20041222
  Transmission Date: 20050727
  Serious: Yes (Disabling)
  Sender: FDA-Public Use
  Company Number: CH-BRISTOL-MYERS SQUIBB COMPANY-12803565

PATIENT
  Age: 65 Year
  Sex: Male
  Weight: 95 kg

DRUGS (6)
  1. CARBOPLATIN [Suspect]
     Indication: PLEURAL MESOTHELIOMA
     Dosage: START DATE:  09-JAN-2004
     Dates: start: 20040730, end: 20040730
  2. CISPLATIN [Suspect]
     Indication: PLEURAL MESOTHELIOMA
     Dates: start: 20030701, end: 20030901
  3. ALIMTA [Suspect]
     Indication: PLEURAL MESOTHELIOMA
     Dosage: START DATE:  09-JAN-2004
     Dates: start: 20040730, end: 20040730
  4. VITAMIN B-12 [Concomitant]
     Indication: PROPHYLAXIS
  5. DEXAMETHASONE [Concomitant]
     Indication: PROPHYLAXIS
  6. FOLIC ACID [Concomitant]
     Indication: PROPHYLAXIS

REACTIONS (2)
  - DEAFNESS [None]
  - VESTIBULAR NEURONITIS [None]
